FAERS Safety Report 5125074-4 (Version None)
Quarter: 2006Q4

REPORT INFORMATION
  Report Type: 
  Country: None (occurrence: None)
  Receive Date: 20061010
  Receipt Date: 20061010
  Transmission Date: 20070319
  Serious: No
  Sender: FDA-Public Use
  Company Number: None

PATIENT
  Sex: Male
  Weight: 74.8435 kg

DRUGS (2)
  1. LOVASTATIN 40 MG PUREPAC [Suspect]
     Indication: BLOOD CHOLESTEROL INCREASED
     Dosage: ONE TABLET TWICE PER DAY PO
     Route: 048
     Dates: start: 20060701, end: 20060825
  2. SIMVASTATIN 40 MG TEVA [Suspect]
     Indication: BLOOD CHOLESTEROL INCREASED
     Dosage: ONE TABLET ONCE PER DAY PO
     Route: 048
     Dates: start: 20060920, end: 20061013

REACTIONS (1)
  - RASH [None]
